FAERS Safety Report 8326075-5 (Version None)
Quarter: 2012Q2

REPORT INFORMATION
  Report Type: 
  Country: None (occurrence: None)
  Receive Date: 20120501
  Receipt Date: 20120409
  Transmission Date: 20120825
  Serious: Yes (Disabling)
  Sender: FDA-Public Use
  Company Number: JP-GLAXOSMITHKLINE-B0795377A

PATIENT
  Sex: Male

DRUGS (12)
  1. PAXIL [Concomitant]
     Dosage: 10MG PER DAY
     Route: 048
  2. LITHIUM CARBONATE [Concomitant]
     Dosage: 120MG PER DAY
     Route: 048
  3. PAXIL [Concomitant]
     Dosage: 5MG PER DAY
     Route: 048
     Dates: end: 20091225
  4. SEROQUEL [Concomitant]
     Indication: BIPOLAR DISORDER
     Dosage: 25MG PER DAY
     Route: 048
     Dates: start: 20110721
  5. LITHIUM CARBONATE [Concomitant]
     Indication: BIPOLAR DISORDER
     Dosage: 200MG PER DAY
     Route: 048
     Dates: start: 20090709
  6. LAMICTAL [Suspect]
     Indication: BIPOLAR DISORDER
     Dosage: 25MG PER DAY
     Route: 048
     Dates: start: 20111117, end: 20111221
  7. SEROQUEL [Concomitant]
     Dosage: 15MG PER DAY
     Route: 048
  8. LAMICTAL [Suspect]
     Dosage: 75MG PER DAY
     Route: 048
     Dates: start: 20120123, end: 20120211
  9. LAMICTAL [Suspect]
     Dosage: 50MG PER DAY
     Route: 048
     Dates: start: 20111222, end: 20120122
  10. PAXIL [Concomitant]
     Dosage: 30MG PER DAY
     Route: 048
     Dates: start: 20090430
  11. PAXIL [Concomitant]
     Dosage: 20MG PER DAY
     Route: 048
  12. AMITRIPTYLINE HCL [Concomitant]
     Route: 048
     Dates: start: 20091224, end: 20100117

REACTIONS (5)
  - AGGRESSION [None]
  - MANIA [None]
  - AFFECTIVE DISORDER [None]
  - SELF ESTEEM INFLATED [None]
  - CIRCADIAN RHYTHM SLEEP DISORDER [None]
